FAERS Safety Report 6932488-6 (Version None)
Quarter: 2010Q3

REPORT INFORMATION
  Report Type: 
  Country: None (occurrence: None)
  Receive Date: 20100819
  Receipt Date: 20100816
  Transmission Date: 20110219
  Serious: Yes (Other)
  Sender: FDA-Public Use
  Company Number: US-MERCK-1008USA00211

PATIENT
  Age: 81 Year
  Sex: Female

DRUGS (2)
  1. COZAAR [Suspect]
     Indication: HYPERTENSION
     Route: 048
     Dates: start: 20070101, end: 20100617
  2. DARVOCET-N 100 [Concomitant]
     Route: 065

REACTIONS (1)
  - LUNG NEOPLASM MALIGNANT [None]
